FAERS Safety Report 18329407 (Version 1)
Quarter: 2020Q3

REPORT INFORMATION
  Report Type: Report from Study
  Country: CA (occurrence: CA)
  Receive Date: 20200930
  Receipt Date: 20200930
  Transmission Date: 20201103
  Serious: Yes (Hospitalization, Other)
  Sender: FDA-Public Use
  Company Number: CA-ACCORD-203099

PATIENT
  Age: 53 Year
  Sex: Male

DRUGS (14)
  1. DOSTINEX [Concomitant]
     Active Substance: CABERGOLINE
     Route: 048
  2. FUROSEMIDE. [Concomitant]
     Active Substance: FUROSEMIDE
  3. SANDOSTATIN [Suspect]
     Active Substance: OCTREOTIDE ACETATE
     Indication: ACROMEGALY
     Dosage: FREQUENCY: 1 EVERY 1 MONTHS
     Route: 030
  4. COVERSYL [Concomitant]
     Active Substance: PERINDOPRIL
     Dosage: FREQUENCY: 1 EVERY 1 DAYS
     Route: 048
  5. COVERSYL [Concomitant]
     Active Substance: PERINDOPRIL
     Dosage: FREQUENCY: 1 EVERY 1 DAYS
     Route: 048
  6. TAMSULOSIN [Concomitant]
     Active Substance: TAMSULOSIN
     Dosage: FREQUENCY: 1 EVERY 1 DAYS
  7. SANDOSTATIN [Suspect]
     Active Substance: OCTREOTIDE ACETATE
     Indication: ACROMEGALY
     Dosage: FREQUENCY: 3 EVERY 1 DAYS
     Route: 058
  8. ATORVASTATIN/ATORVASTATIN CALCIUM [Suspect]
     Active Substance: ATORVASTATIN CALCIUM
     Indication: PRODUCT USED FOR UNKNOWN INDICATION
  9. METFORMIN [Suspect]
     Active Substance: METFORMIN HYDROCHLORIDE
     Indication: PRODUCT USED FOR UNKNOWN INDICATION
     Dosage: FREQUENCY: 2 EVERY 1 DAYS
     Route: 048
  10. METFORMIN [Concomitant]
     Active Substance: METFORMIN HYDROCHLORIDE
     Dosage: FREQUENCY: 2 EVERY 1 DAYS
  11. SOMAVERT [Concomitant]
     Active Substance: PEGVISOMANT
     Dosage: DOSAGE FORM: POWDER FOR SOLUTION SUBCUTANEOUS
     Route: 058
  12. BISOPROLOL [Concomitant]
     Active Substance: BISOPROLOL
     Dosage: FREQUENCY: 1 EVERY 1 DAYS
  13. BOSENTAN. [Concomitant]
     Active Substance: BOSENTAN
  14. SANDOSTATIN [Suspect]
     Active Substance: OCTREOTIDE ACETATE
     Indication: ACROMEGALY
     Route: 030

REACTIONS (20)
  - Blood pressure fluctuation [Recovered/Resolved]
  - Faeces soft [Recovered/Resolved]
  - Dyspnoea exertional [Recovered/Resolved]
  - Gastroenteritis viral [Recovered/Resolved]
  - Injection site erosion [Recovered/Resolved]
  - Flatulence [Recovered/Resolved]
  - Headache [Recovered/Resolved]
  - Heart rate decreased [Recovered/Resolved]
  - Insulin-like growth factor increased [Recovered/Resolved]
  - Abdominal distension [Recovered/Resolved]
  - Lactose intolerance [Unknown]
  - Renal haematoma [Recovered/Resolved]
  - Diarrhoea [Recovered/Resolved]
  - Fatigue [Recovered/Resolved]
  - Blood cholesterol abnormal [Recovered/Resolved]
  - Blister [Recovered/Resolved]
  - Blood pressure increased [Recovered/Resolved]
  - Erythema [Recovered/Resolved]
  - Needle issue [Unknown]
  - Therapeutic response decreased [Unknown]
